FAERS Safety Report 5522330-2 (Version None)
Quarter: 2007Q4

REPORT INFORMATION
  Report Type: 
  Country: None (occurrence: None)
  Receive Date: 20071120
  Receipt Date: 20071112
  Transmission Date: 20080405
  Serious: Yes (Hospitalization, Other)
  Sender: FDA-Public Use
  Company Number: JP-ELI_LILLY_AND_COMPANY-JP200711003345

PATIENT
  Sex: Female

DRUGS (2)
  1. GEMZAR [Suspect]
     Indication: PANCREATIC CARCINOMA
     Dosage: 1200 MG, UNK
     Route: 042
     Dates: start: 20071016
  2. ANTIHYPERTENSIVES [Concomitant]

REACTIONS (2)
  - CEREBRAL INFARCTION [None]
  - PULMONARY EMBOLISM [None]
